FAERS Safety Report 10750806 (Version 1)
Quarter: 2015Q1

REPORT INFORMATION
  Report Type: Spontaneous
  Country: RU (occurrence: RU)
  Receive Date: 20150130
  Receipt Date: 20150130
  Transmission Date: 20150721
  Serious: Yes (Death, Hospitalization)
  Sender: FDA-Public Use
  Company Number: RU-ASTRAZENECA-2015SE07908

PATIENT
  Age: 23647 Day
  Sex: Male
  Weight: 65 kg

DRUGS (16)
  1. BRILINTA [Suspect]
     Active Substance: TICAGRELOR
     Indication: ACUTE CORONARY SYNDROME
     Route: 048
     Dates: start: 20150102, end: 20150102
  2. ADRENALINE [Concomitant]
     Active Substance: EPINEPHRINE
     Indication: ACUTE CORONARY SYNDROME
     Dosage: 0.5
     Route: 040
     Dates: start: 20150102, end: 20150102
  3. OMEZ [Concomitant]
     Active Substance: OMEPRAZOLE
     Indication: ACUTE CORONARY SYNDROME
     Route: 048
     Dates: start: 20150102, end: 20150103
  4. VEROSPIRON [Concomitant]
     Active Substance: SPIRONOLACTONE
     Indication: ACUTE CORONARY SYNDROME
     Route: 048
     Dates: start: 20150103, end: 20150103
  5. HEPARIN [Concomitant]
     Active Substance: HEPARIN SODIUM
     Indication: ACUTE CORONARY SYNDROME
     Route: 040
     Dates: start: 20150102, end: 20150102
  6. HEPARIN [Concomitant]
     Active Substance: HEPARIN SODIUM
     Indication: ACUTE CORONARY SYNDROME
     Route: 041
     Dates: start: 20150102, end: 20150103
  7. LIDOCAINE. [Concomitant]
     Active Substance: LIDOCAINE
     Indication: ACUTE CORONARY SYNDROME
     Route: 041
     Dates: start: 20150102, end: 20150103
  8. CEFTRIAXONE. [Concomitant]
     Active Substance: CEFTRIAXONE
     Indication: ACUTE CORONARY SYNDROME
     Route: 040
     Dates: start: 20150102, end: 20150103
  9. DOPMIN [Concomitant]
     Route: 041
     Dates: start: 20150102, end: 20150103
  10. CARDIASK [Concomitant]
     Active Substance: ASPIRIN
     Indication: ACUTE CORONARY SYNDROME
     Route: 048
     Dates: start: 20150103, end: 20150103
  11. BRILINTA [Suspect]
     Active Substance: TICAGRELOR
     Indication: ACUTE CORONARY SYNDROME
     Route: 048
     Dates: start: 20150103, end: 20150103
  12. ATROPINE [Concomitant]
     Active Substance: ATROPINE
     Indication: ACUTE CORONARY SYNDROME
     Dosage: 1 ONCE/SINGLE ADMINISTRATION
     Route: 040
     Dates: start: 20150102, end: 20150102
  13. LASIX [Concomitant]
     Active Substance: FUROSEMIDE
     Indication: ACUTE CORONARY SYNDROME
     Route: 040
     Dates: start: 20150102, end: 20150102
  14. SODIUM BICARBONATE. [Concomitant]
     Active Substance: SODIUM BICARBONATE
     Indication: ACUTE CORONARY SYNDROME
     Dosage: 150 ONCE/SINGLE ADMINISTRATION
     Route: 041
     Dates: start: 20150102, end: 20150102
  15. ATORVASTATIN [Concomitant]
     Active Substance: ATORVASTATIN
     Indication: ACUTE CORONARY SYNDROME
     Route: 048
     Dates: start: 20150102, end: 20150103
  16. ETHANOL [Concomitant]
     Active Substance: ALCOHOL
     Indication: ACUTE CORONARY SYNDROME
     Dosage: 10 ONCE/SINGLE ADMINISTRATION
     Route: 040
     Dates: start: 20150102, end: 20150102

REACTIONS (5)
  - Cardiac failure acute [Fatal]
  - Cardiogenic shock [Fatal]
  - Multi-organ failure [Fatal]
  - Coma [Unknown]
  - Atrial fibrillation [Unknown]
